FAERS Safety Report 16528611 (Version 1)
Quarter: 2019Q3

REPORT INFORMATION
  Report Type: Report from Study
  Country: CA (occurrence: CA)
  Receive Date: 20190703
  Receipt Date: 20190703
  Transmission Date: 20191004
  Serious: Yes (Other)
  Sender: FDA-Public Use
  Company Number: PHHY2019CA151913

PATIENT
  Sex: Male

DRUGS (4)
  1. REACTINE [Concomitant]
     Indication: URTICARIA
     Dosage: 1 DF, PRN
     Route: 048
  2. AMLODIPINE [Concomitant]
     Active Substance: AMLODIPINE BESYLATE
     Indication: BLOOD PRESSURE ABNORMAL
     Dosage: 1 DF, QD
     Route: 048
     Dates: start: 2002
  3. CLARITIN [Concomitant]
     Active Substance: LORATADINE
     Indication: URTICARIA
     Dosage: 1 DF, PRN
     Route: 048
  4. OLOPATADINE. [Suspect]
     Active Substance: OLOPATADINE
     Indication: PRODUCT USED FOR UNKNOWN INDICATION
     Dosage: 1 GTT, PRN
     Route: 047

REACTIONS (2)
  - Hypersensitivity [Unknown]
  - Insomnia [Unknown]
